FAERS Safety Report 7044466-X (Version None)
Quarter: 2010Q4

REPORT INFORMATION
  Report Type: 
  Country: None (occurrence: None)
  Receive Date: 20101014
  Receipt Date: 20101004
  Transmission Date: 20110411
  Serious: Yes (Other)
  Sender: FDA-Public Use
  Company Number: US-US-EMD SERONO, INC.-238285K09USA

PATIENT
  Sex: Male

DRUGS (3)
  1. REBIF [Suspect]
     Indication: PROGRESSIVE MULTIPLE SCLEROSIS
     Route: 058
     Dates: start: 20090401, end: 20100816
  2. DILANTIN [Concomitant]
  3. CELEXA [Concomitant]
     Indication: BIPOLAR DISORDER

REACTIONS (1)
  - GRAND MAL CONVULSION [None]
